FAERS Safety Report 4998597-6 (Version None)
Quarter: 2006Q2

REPORT INFORMATION
  Report Type: 
  Country: None (occurrence: None)
  Receive Date: 20060509
  Receipt Date: 20060426
  Transmission Date: 20061013
  Serious: Yes (Death)
  Sender: FDA-Public Use
  Company Number: CERZ-11204

PATIENT
  Age: 24 Month
  Sex: Female
  Weight: 10 kg

DRUGS (10)
  1. CEREZYME [Suspect]
     Indication: GAUCHER'S DISEASE
     Dosage: 800 UNITS Q2WKS; IV
     Route: 042
     Dates: start: 20050719, end: 20060404
  2. CEREZYME [Suspect]
     Indication: GAUCHER'S DISEASE
     Dosage: 600 UNITS Q2WKS; IV
     Route: 042
     Dates: start: 20040827, end: 20050701
  3. DIAZEPAM [Concomitant]
  4. MIDAZOLAM HCL [Concomitant]
  5. CHLORAL HYDRATE [Concomitant]
  6. PHENOBARBITAL SODIUM 100MG CAP [Concomitant]
  7. POTASSIUM BROMIDE [Concomitant]
  8. SODIUM VALPROATE [Concomitant]
  9. LEVODOPA [Concomitant]
  10. ACETAMINOPHEN [Concomitant]

REACTIONS (3)
  - CARNITINE DECREASED [None]
  - CONDITION AGGRAVATED [None]
  - GAUCHER'S DISEASE [None]
